FAERS Safety Report 9800345 (Version 2)
Quarter: 2014Q3

REPORT INFORMATION
  Report Type: Spontaneous
  Country: US (occurrence: US)
  Receive Date: 20140106
  Receipt Date: 20140812
  Transmission Date: 20150326
  Serious: Yes (Hospitalization, Other)
  Sender: FDA-Public Use
  Company Number: US-009507513-1401USA001432

PATIENT
  Sex: Female

DRUGS (2)
  1. NUVARING [Suspect]
     Active Substance: ETHINYL ESTRADIOL\ETONOGESTREL
     Indication: MENORRHAGIA
     Dosage: UNK
     Route: 067
     Dates: start: 2009
  2. NUVARING [Suspect]
     Active Substance: ETHINYL ESTRADIOL\ETONOGESTREL
     Indication: POLYCYSTIC OVARIES

REACTIONS (24)
  - Chest pain [Unknown]
  - Asthenia [Unknown]
  - Depression [Unknown]
  - Fibromyalgia [Unknown]
  - Attention deficit/hyperactivity disorder [Unknown]
  - Hiatus hernia [Unknown]
  - Vomiting [Unknown]
  - Oedema peripheral [Unknown]
  - Cholecystectomy [Unknown]
  - Urinary incontinence [Unknown]
  - Iron deficiency anaemia [Unknown]
  - Raynaud^s phenomenon [Unknown]
  - Off label use [Unknown]
  - Gastric bypass [Unknown]
  - Fatigue [Unknown]
  - Nasopharyngitis [Unknown]
  - Hypoaesthesia [Unknown]
  - Anxiety [Unknown]
  - Pulmonary embolism [Unknown]
  - Back pain [Unknown]
  - Decreased appetite [Unknown]
  - Cough [Unknown]
  - Pain [Unknown]
  - Increased tendency to bruise [Unknown]

NARRATIVE: CASE EVENT DATE: 2009
